FAERS Safety Report 19510812 (Version 1)
Quarter: 2021Q3

REPORT INFORMATION
  Report Type: Report from Study
  Country: JP (occurrence: JP)
  Receive Date: 20210709
  Receipt Date: 20210709
  Transmission Date: 20211014
  Serious: Yes (Other)
  Sender: FDA-Public Use
  Company Number: JP-HRARD-2021000590

PATIENT
  Age: 69 Year
  Sex: Female

DRUGS (2)
  1. MITOTANE [Suspect]
     Active Substance: MITOTANE
     Dosage: AT TERMINATION
     Route: 048
  2. MITOTANE [Suspect]
     Active Substance: MITOTANE
     Route: 048

REACTIONS (2)
  - Off label use [Recovered/Resolved]
  - Mycobacterial infection [Unknown]
